FAERS Safety Report 12633080 (Version 2)
Quarter: 2016Q3

REPORT INFORMATION
  Report Type: Spontaneous
  Country: US (occurrence: US)
  Receive Date: 20160808
  Receipt Date: 20160808
  Transmission Date: 20161109
  Serious: No
  Sender: FDA-Public Use
  Company Number: US-BEH-2016058386

PATIENT
  Sex: Male
  Weight: 106 kg

DRUGS (22)
  1. HIZENTRA [Suspect]
     Active Substance: HUMAN IMMUNOGLOBULIN G
     Indication: IMMUNODEFICIENCY COMMON VARIABLE
     Route: 058
     Dates: start: 20110124
  2. ACETAMINOPHEN. [Concomitant]
     Active Substance: ACETAMINOPHEN
  3. LEVAQUIN [Concomitant]
     Active Substance: LEVOFLOXACIN
  4. MAGNESIUM [Concomitant]
     Active Substance: MAGNESIUM
  5. FISH OIL [Concomitant]
     Active Substance: FISH OIL
  6. ALBUTEROL. [Concomitant]
     Active Substance: ALBUTEROL
  7. MULTIVITAMIN [Concomitant]
     Active Substance: VITAMINS
  8. DIPHENHYDRAMINE. [Concomitant]
     Active Substance: DIPHENHYDRAMINE
  9. EPIPEN [Concomitant]
     Active Substance: EPINEPHRINE
  10. ASPIRIN. [Concomitant]
     Active Substance: ASPIRIN
  11. SYMBICORT [Concomitant]
     Active Substance: BUDESONIDE\FORMOTEROL FUMARATE DIHYDRATE
  12. ALVESCO [Concomitant]
     Active Substance: CICLESONIDE
  13. PREDNISONE. [Concomitant]
     Active Substance: PREDNISONE
  14. VITAMIN D [Concomitant]
     Active Substance: CHOLECALCIFEROL
  15. IRON [Concomitant]
     Active Substance: IRON
  16. CALCIUM [Concomitant]
     Active Substance: CALCIUM
  17. IPRATROPIUM [Concomitant]
     Active Substance: IPRATROPIUM
  18. PROVENTIL [Concomitant]
     Active Substance: ALBUTEROL
  19. METFORMIN [Concomitant]
     Active Substance: METFORMIN HYDROCHLORIDE
  20. SPIRIVA [Concomitant]
     Active Substance: TIOTROPIUM BROMIDE MONOHYDRATE
  21. LIDOCAINE. [Concomitant]
     Active Substance: LIDOCAINE
  22. SINGULAIR [Concomitant]
     Active Substance: MONTELUKAST SODIUM

REACTIONS (1)
  - Influenza [Unknown]
